FAERS Safety Report 5757963-1 (Version None)
Quarter: 2008Q2

REPORT INFORMATION
  Report Type: 
  Country: None (occurrence: None)
  Receive Date: 20080530
  Receipt Date: 20080522
  Transmission Date: 20081010
  Serious: Yes (Death)
  Sender: FDA-Public Use
  Company Number: 2008SP005701

PATIENT
  Age: 58 Year
  Sex: Male

DRUGS (11)
  1. PEG-INTRON [Suspect]
     Indication: HEPATITIS C
     Dosage: 150 MCG; QW; SC
     Route: 058
     Dates: start: 20080115, end: 20080115
  2. RIBAVIRIN [Suspect]
     Indication: HEPATITIS C
     Dosage: 1400 MG; QD; PO
     Route: 048
     Dates: start: 20080115, end: 20080115
  3. OMEPRAZOLE [Concomitant]
  4. DURAGESIC-100 [Concomitant]
  5. FUROSEMIDE [Concomitant]
  6. LACULOSE [Concomitant]
  7. LYRICA [Concomitant]
  8. PREDNISONE TAB [Concomitant]
  9. HYDROCODONE [Concomitant]
  10. SPIRONOLACTONE [Concomitant]
  11. QUININE [Concomitant]

REACTIONS (9)
  - ACUTE HEPATIC FAILURE [None]
  - ATRIAL FLUTTER [None]
  - HAEMOGLOBIN INCREASED [None]
  - HAEMORRHAGE [None]
  - HEPATIC NEOPLASM MALIGNANT [None]
  - IDIOPATHIC THROMBOCYTOPENIC PURPURA [None]
  - RENAL FAILURE [None]
  - RESPIRATORY FAILURE [None]
  - SEPSIS [None]
